FAERS Safety Report 6059096-6 (Version None)
Quarter: 2009Q1

REPORT INFORMATION
  Report Type: 
  Country: None (occurrence: None)
  Receive Date: 20090130
  Receipt Date: 20080819
  Transmission Date: 20090719
  Serious: Yes (Hospitalization)
  Sender: FDA-Public Use
  Company Number: US-JNJFOC-20080702931

PATIENT
  Sex: Female

DRUGS (8)
  1. LEVAQUIN [Suspect]
     Indication: VERTIGO
     Route: 048
  2. LEVAQUIN [Suspect]
     Indication: SINUSITIS
     Route: 048
  3. CIPROFLOXACIN [Concomitant]
     Indication: URINARY TRACT INFECTION
  4. CIPROFLOXACIN [Concomitant]
     Indication: SINUSITIS
     Dosage: THE DRUG WAS STOPPED 4 WEEKS PRIOR TO ADMISSION
  5. MECLIZINE [Concomitant]
     Indication: VERTIGO
  6. MECLIZINE [Concomitant]
     Indication: SINUSITIS
  7. AMI-TEX LA [Concomitant]
     Indication: VERTIGO
  8. AMI-TEX LA [Concomitant]
     Indication: SINUSITIS

REACTIONS (2)
  - DELIRIUM [None]
  - PSYCHOTIC DISORDER [None]
